FAERS Safety Report 24953682 (Version 3)
Quarter: 2025Q3

REPORT INFORMATION
  Report Type: Report from Study
  Country: CA (occurrence: CA)
  Receive Date: 20250211
  Receipt Date: 20250728
  Transmission Date: 20251020
  Serious: Yes (Other)
  Sender: TAKEDA
  Company Number: CA-TAKEDA-2025TUS012593

PATIENT
  Sex: Female
  Weight: 73 kg

DRUGS (13)
  1. VEDOLIZUMAB [Suspect]
     Active Substance: VEDOLIZUMAB
     Indication: Colitis ulcerative
  2. VEDOLIZUMAB [Suspect]
     Active Substance: VEDOLIZUMAB
  3. VEDOLIZUMAB [Suspect]
     Active Substance: VEDOLIZUMAB
  4. MESALAMINE [Concomitant]
     Active Substance: MESALAMINE
  5. PREDNISONE [Concomitant]
     Active Substance: PREDNISONE
  6. VITAMIN D [Concomitant]
     Active Substance: VITAMIN D NOS
  7. FERROUS SULFATE [Concomitant]
     Active Substance: FERROUS SULFATE
  8. IRON [Concomitant]
     Active Substance: IRON
  9. SYNTHROID [Concomitant]
     Active Substance: LEVOTHYROXINE SODIUM
  10. ATORVASTATIN [Concomitant]
     Active Substance: ATORVASTATIN
  11. ATACAND [Concomitant]
     Active Substance: CANDESARTAN CILEXETIL
  12. ASACOL [Concomitant]
     Active Substance: MESALAMINE
  13. FENTANYL [Concomitant]
     Active Substance: FENTANYL

REACTIONS (7)
  - Colitis ulcerative [Unknown]
  - Haematochezia [Unknown]
  - Product dose omission issue [Unknown]
  - Diarrhoea [Unknown]
  - Rectal tenesmus [Unknown]
  - Abdominal pain [Unknown]
  - Treatment failure [Unknown]
